FAERS Safety Report 16945410 (Version 1)
Quarter: 2019Q4

REPORT INFORMATION
  Report Type: Spontaneous
  Country: GB (occurrence: GB)
  Receive Date: 20191022
  Receipt Date: 20191022
  Transmission Date: 20200122
  Serious: Yes (Other)
  Sender: FDA-Public Use
  Company Number: GB-MYLANLABS-2019M1100325

PATIENT
  Age: 57 Year
  Sex: Male

DRUGS (5)
  1. VALGANCICLOVIR. [Suspect]
     Active Substance: VALGANCICLOVIR
     Indication: TRANSPLANT REJECTION
     Dosage: 900 MILLIGRAM, QD (450-900 MG/DAY)
     Route: 065
  2. AZATHIOPRINE. [Suspect]
     Active Substance: AZATHIOPRINE
     Indication: IMMUNOSUPPRESSION
     Dosage: 2 MILLIGRAM/KILOGRAM, QD (1?2 MG/KG/D)
     Route: 048
  3. CYTOTECT CP [Suspect]
     Active Substance: HUMAN CYTOMEGALOVIRUS IMMUNE GLOBULIN
     Indication: CYTOMEGALOVIRUS INFECTION
     Dosage: 3 DOSAGE FORM (0.5 WK, 2?3 ML/KG, EXPRESSED IN LOG10 COPIES/ML: }5.2: BIWEEKLY)
     Route: 065
  4. CYCLOSPORINE. [Suspect]
     Active Substance: CYCLOSPORINE
     Indication: IMMUNOSUPPRESSION
     Dosage: 16 MILLIGRAM/KILOGRAM, QD (4?8 MG/KG/D IN TWO DIVIDED DOSES)
     Route: 065
  5. GANCICLOVIR. [Suspect]
     Active Substance: GANCICLOVIR
     Indication: CYTOMEGALOVIRUS INFECTION
     Dosage: 5 MILLIGRAM/KILOGRAM, BID
     Route: 042

REACTIONS (4)
  - Oedema peripheral [Unknown]
  - Fluid retention [Unknown]
  - Cytomegalovirus syndrome [Unknown]
  - Renal impairment [Unknown]
